FAERS Safety Report 9416200 (Version 1)
Quarter: 2013Q3

REPORT INFORMATION
  Report Type: Spontaneous
  Country: BR (occurrence: None)
  Receive Date: 20130718
  Receipt Date: 20130718
  Transmission Date: 20140515
  Serious: Yes (Hospitalization)
  Sender: FDA-Public Use
  Company Number: DSJ-2013-15814

PATIENT
  Age: 7 Decade
  Sex: Male
  Weight: 105 kg

DRUGS (4)
  1. BENICAR ANLO [Suspect]
     Indication: HYPERTENSION
     Route: 048
     Dates: end: 201212
  2. METOPROLOL (METOPROLOL) (METOPROLOL) [Concomitant]
  3. OMEPRAZOLE (OMEPRAZOLE) (OMEPRAZOLE) [Concomitant]
  4. PROPAFENONE (PROPAFENONE) (PROPAFENONE) [Concomitant]

REACTIONS (4)
  - Cardiac fibrillation [None]
  - Somnolence [None]
  - Hypotension [None]
  - Malaise [None]
